FAERS Safety Report 6774827-5 (Version None)
Quarter: 2010Q2

REPORT INFORMATION
  Report Type: 
  Country: None (occurrence: None)
  Receive Date: 20100615
  Receipt Date: 20100615
  Transmission Date: 20101027
  Serious: Yes (Other)
  Sender: FDA-Public Use
  Company Number: None

PATIENT
  Sex: Female

DRUGS (1)
  1. LANTUS [Suspect]
     Indication: DIABETES MELLITUS
     Dosage: 21 UNITS QHS SQ
     Route: 058

REACTIONS (3)
  - BLOOD GLUCOSE DECREASED [None]
  - DRUG PRESCRIBING ERROR [None]
  - HYPOPHAGIA [None]
